FAERS Safety Report 12249426 (Version 2)
Quarter: 2016Q2

REPORT INFORMATION
  Report Type: Report from Study
  Country: BR (occurrence: BR)
  Receive Date: 20160408
  Receipt Date: 20160425
  Transmission Date: 20160815
  Serious: Yes (Other)
  Sender: FDA-Public Use
  Company Number: PHHY2016BR023387

PATIENT
  Age: 41 Year
  Sex: Female
  Weight: 61 kg

DRUGS (3)
  1. AROMASIN [Concomitant]
     Active Substance: EXEMESTANE
     Indication: BREAST CANCER
     Dosage: 1 DF OF 25 MG, QD (6 HS AFTER AFINITOR)
     Route: 048
     Dates: start: 20160117
  2. AFINITOR [Suspect]
     Active Substance: EVEROLIMUS
     Indication: BREAST CANCER METASTATIC
     Dosage: 1 DF OF 5 MG, QD
     Route: 048
     Dates: start: 20160117
  3. AROMASIN [Concomitant]
     Active Substance: EXEMESTANE
     Indication: HORMONE SUPPRESSION THERAPY

REACTIONS (11)
  - Cough [Recovering/Resolving]
  - Glossodynia [Not Recovered/Not Resolved]
  - Decreased appetite [Not Recovered/Not Resolved]
  - Weight decreased [Not Recovered/Not Resolved]
  - Headache [Not Recovered/Not Resolved]
  - Malaise [Not Recovered/Not Resolved]
  - Fatigue [Not Recovered/Not Resolved]
  - Thirst [Not Recovered/Not Resolved]
  - Migraine [Not Recovered/Not Resolved]
  - Aphthous ulcer [Not Recovered/Not Resolved]
  - Dyspnoea [Not Recovered/Not Resolved]

NARRATIVE: CASE EVENT DATE: 201601
